FAERS Safety Report 7124039-0 (Version None)
Quarter: 2010Q4

REPORT INFORMATION
  Report Type: 
  Country: None (occurrence: None)
  Receive Date: 20101126
  Receipt Date: 20101124
  Transmission Date: 20110411
  Serious: Yes (Death)
  Sender: FDA-Public Use
  Company Number: VE-PFIZER INC-2010144584

PATIENT
  Age: 53 Year
  Sex: Male

DRUGS (4)
  1. NORVASC [Suspect]
     Indication: HYPERTENSION
     Dosage: 5 MG, 1X/DAY
     Route: 048
     Dates: start: 20080101
  2. LIPITOR [Suspect]
     Indication: HYPERCHOLESTEROLAEMIA
     Dosage: 40 MG, 2X/DAY
     Route: 048
     Dates: start: 20080101
  3. LIPITOR [Suspect]
     Indication: HYPERTRIGLYCERIDAEMIA
  4. GLUCOPHAGE [Concomitant]
     Indication: BLOOD GLUCOSE FLUCTUATION
     Dosage: 1 DF, 1X/DAY
     Route: 048
     Dates: start: 20080101

REACTIONS (1)
  - THROMBOSIS [None]
